FAERS Safety Report 9888819 (Version 1)
Quarter: 2014Q1

REPORT INFORMATION
  Report Type: Spontaneous
  Country: US (occurrence: None)
  Receive Date: 20140210
  Receipt Date: 20140210
  Transmission Date: 20141002
  Serious: Yes (Life-Threatening, Hospitalization, Disabling)
  Sender: FDA-Public Use
  Company Number: None

PATIENT
  Age: 51 Year
  Sex: Male
  Weight: 111.13 kg

DRUGS (2)
  1. ANDROGEL [Suspect]
     Indication: ASTHENIA
     Dosage: 2 PACKETS DAILY ?TWICE DAILY?APPLIED TO A SURGACE USUALLY THE SKIN
     Route: 061
     Dates: start: 20110501, end: 20111223
  2. TESTIM [Suspect]

REACTIONS (3)
  - Pulmonary embolism [None]
  - Myocardial infarction [None]
  - Apparent death [None]
